FAERS Safety Report 18873096 (Version 1)
Quarter: 2021Q1

REPORT INFORMATION
  Report Type: Spontaneous
  Country: US (occurrence: US)
  Receive Date: 20210210
  Receipt Date: 20210210
  Transmission Date: 20210420
  Serious: No
  Sender: FDA-Public Use
  Company Number: US-MORPHOSYS US-2020-MOR000904-US

PATIENT
  Sex: Male

DRUGS (1)
  1. MONJUVI [Suspect]
     Active Substance: TAFASITAMAB-CXIX
     Indication: DIFFUSE LARGE B-CELL LYMPHOMA
     Dosage: 200 MILLIGRAM POWDER FOR RECONSTITUTION
     Route: 042
     Dates: start: 202010

REACTIONS (1)
  - Hypotension [Recovered/Resolved]
